FAERS Safety Report 17895553 (Version 1)
Quarter: 2020Q2

REPORT INFORMATION
  Report Type: Spontaneous
  Country: US (occurrence: US)
  Receive Date: 20200615
  Receipt Date: 20200615
  Transmission Date: 20200714
  Serious: Yes (Hospitalization)
  Sender: FDA-Public Use
  Company Number: US-PFIZER INC-2020228112

PATIENT
  Age: 80 Year
  Sex: Male
  Weight: 70.31 kg

DRUGS (2)
  1. INLYTA [Suspect]
     Active Substance: AXITINIB
     Dosage: 5 MG, 2X/DAY
     Dates: start: 202005, end: 20200602
  2. INLYTA [Suspect]
     Active Substance: AXITINIB
     Indication: RENAL CANCER
     Dosage: 5 MG, 2X/DAY
     Dates: start: 20200512, end: 202005

REACTIONS (3)
  - Blood pressure fluctuation [Unknown]
  - Malaise [Unknown]
  - Blood sodium decreased [Unknown]

NARRATIVE: CASE EVENT DATE: 20200516
